FAERS Safety Report 8067133-2 (Version None)
Quarter: 2012Q1

REPORT INFORMATION
  Report Type: 
  Country: None (occurrence: None)
  Receive Date: 20120124
  Receipt Date: 20120109
  Transmission Date: 20120608
  Serious: Yes (Other)
  Sender: FDA-Public Use
  Company Number: GB-WATSON-2012-00747

PATIENT
  Age: 42 Year
  Sex: Female

DRUGS (4)
  1. PREDNISOLONE [Suspect]
     Indication: HODGKIN'S DISEASE
     Route: 065
  2. PREDNISOLONE [Suspect]
     Indication: HIV ANTIBODY
  3. PREDNISOLONE [Suspect]
     Indication: MENINGITIS TUBERCULOUS
  4. PREDNISOLONE [Suspect]
     Indication: HEPATITIS C

REACTIONS (5)
  - PLEURAL EFFUSION [None]
  - PNEUMATOSIS INTESTINALIS [None]
  - PNEUMOPERITONEUM [None]
  - NEUTROPENIC SEPSIS [None]
  - CAECITIS [None]
